FAERS Safety Report 23405888 (Version 2)
Quarter: 2024Q1

REPORT INFORMATION
  Report Type: Spontaneous
  Country: CA (occurrence: None)
  Receive Date: 20240116
  Receipt Date: 20240209
  Transmission Date: 20240410
  Serious: Yes (Life-Threatening)
  Sender: FDA-Public Use
  Company Number: 2024A010537

PATIENT
  Age: 77 Year
  Sex: Female

DRUGS (1)
  1. FASENRA [Suspect]
     Active Substance: BENRALIZUMAB
     Route: 058

REACTIONS (20)
  - Fear of death [Unknown]
  - Headache [Unknown]
  - Rhinorrhoea [Unknown]
  - Malaise [Unknown]
  - Asthenia [Unknown]
  - Eczema [Unknown]
  - COVID-19 [Unknown]
  - Insomnia [Unknown]
  - Pain [Unknown]
  - Lung disorder [Unknown]
  - Vomiting [Unknown]
  - Eye disorder [Unknown]
  - Dyspnoea [Unknown]
  - Nausea [Unknown]
  - Hypersensitivity [Unknown]
  - Weight decreased [Unknown]
  - Fatigue [Unknown]
  - Urticaria [Unknown]
  - Wrong technique in device usage process [Unknown]
  - Inappropriate schedule of product administration [Unknown]
